FAERS Safety Report 5792888-7 (Version None)
Quarter: 2008Q2

REPORT INFORMATION
  Report Type: 
  Country: None (occurrence: None)
  Receive Date: 20080627
  Receipt Date: 20080617
  Transmission Date: 20081010
  Serious: Yes (Hospitalization)
  Sender: FDA-Public Use
  Company Number: BR-WYE-H04392608

PATIENT
  Age: 21 Year
  Sex: Female
  Weight: 75 kg

DRUGS (5)
  1. EFFEXOR XR [Suspect]
     Indication: DEPRESSION
     Route: 048
     Dates: start: 20080501, end: 20080501
  2. EFFEXOR XR [Suspect]
     Indication: ANXIETY
     Route: 048
     Dates: start: 20080501, end: 20080514
  3. EFFEXOR XR [Suspect]
     Route: 048
     Dates: start: 20080515, end: 20080605
  4. LAMOTRIGINE [Concomitant]
     Indication: DEPRESSION
     Route: 048
     Dates: start: 20080602, end: 20080605
  5. ALPRAZOLAM [Concomitant]
     Indication: ANXIETY
     Route: 048
     Dates: end: 20080605

REACTIONS (7)
  - ALTERED STATE OF CONSCIOUSNESS [None]
  - CHOREA [None]
  - GAIT DISTURBANCE [None]
  - HYPERHIDROSIS [None]
  - MUSCLE CONTRACTIONS INVOLUNTARY [None]
  - OCULOGYRIC CRISIS [None]
  - SALIVARY HYPERSECRETION [None]
